FAERS Safety Report 8536941-3 (Version None)
Quarter: 2012Q3

REPORT INFORMATION
  Report Type: 
  Country: None (occurrence: None)
  Receive Date: 20120725
  Receipt Date: 20120717
  Transmission Date: 20120928
  Serious: Yes (Hospitalization)
  Sender: FDA-Public Use
  Company Number: CA-JNJFOC-20120704356

PATIENT
  Sex: Female
  Weight: 67 kg

DRUGS (2)
  1. REMICADE [Suspect]
     Indication: CROHN'S DISEASE
     Route: 042
     Dates: start: 20120709
  2. REMICADE [Suspect]
     Dosage: INTERVALS AT 0, 2, 6 AND 8 WEEKS
     Route: 042
     Dates: start: 20120626

REACTIONS (2)
  - DIARRHOEA [None]
  - DEHYDRATION [None]
